FAERS Safety Report 21660585 (Version 1)
Quarter: 2022Q4

REPORT INFORMATION
  Report Type: Report from Study
  Country: US (occurrence: US)
  Receive Date: 20221130
  Receipt Date: 20221130
  Transmission Date: 20230113
  Serious: No
  Sender: FDA-Public Use
  Company Number: US-ABBVIE-4180393

PATIENT
  Sex: Male

DRUGS (4)
  1. SKYRIZI [Suspect]
     Active Substance: RISANKIZUMAB-RZAA
     Indication: Psoriasis
     Route: 058
  2. Covid-19 vaccine [Concomitant]
     Indication: COVID-19 immunisation
     Dosage: FIST DOSE; 1 IN 1 ONCE
     Route: 030
     Dates: start: 2021, end: 2021
  3. Covid-19 vaccine [Concomitant]
     Indication: COVID-19 immunisation
     Dosage: 1 IN 1 ONCE; 2ND DOSE
     Route: 030
     Dates: start: 2021, end: 2021
  4. Covid-19 vaccine [Concomitant]
     Indication: COVID-19 immunisation
     Dosage: 1 IN 1 ONCE; (3RD DOSE, BOOSTER DOSE)
     Route: 030
     Dates: start: 2022, end: 2022

REACTIONS (3)
  - Aphonia [Unknown]
  - Cough [Unknown]
  - Sneezing [Unknown]
